FAERS Safety Report 15058460 (Version 1)
Quarter: 2018Q2

REPORT INFORMATION
  Report Type: Spontaneous
  Country: US (occurrence: US)
  Receive Date: 20180625
  Receipt Date: 20180625
  Transmission Date: 20180711
  Serious: Yes (Life-Threatening, Hospitalization, Other)
  Sender: FDA-Public Use
  Company Number: US-AUROBINDO-AUR-APL-2018-031795

PATIENT
  Age: 66 Year
  Sex: Female

DRUGS (3)
  1. QUINAPRIL. [Suspect]
     Active Substance: QUINAPRIL
     Dosage: ()
  2. QUINAPRIL. [Suspect]
     Active Substance: QUINAPRIL
     Indication: HYPERTENSION
     Dosage: UNK
     Route: 065
  3. PLASMINOGEN [Suspect]
     Active Substance: PLASMINOGEN
     Indication: HYPERTENSION
     Route: 065

REACTIONS (5)
  - Swollen tongue [Unknown]
  - Angioedema [Unknown]
  - Lip swelling [Unknown]
  - Stridor [Unknown]
  - Drooling [Unknown]
